FAERS Safety Report 6279870-0 (Version None)
Quarter: 2009Q3

REPORT INFORMATION
  Report Type: 
  Country: None (occurrence: None)
  Receive Date: 20090723
  Receipt Date: 20090721
  Transmission Date: 20100115
  Serious: Yes (Death)
  Sender: FDA-Public Use
  Company Number: PHHY2009AR30199

PATIENT
  Sex: Female

DRUGS (2)
  1. EXELON [Suspect]
     Dosage: 1.5 MG, UNK
     Dates: start: 20061201
  2. EXELON [Suspect]
     Dosage: 3 MG (2 TABLETS DAILY)

REACTIONS (1)
  - DEATH [None]
